FAERS Safety Report 11048103 (Version 2)
Quarter: 2015Q2

REPORT INFORMATION
  Report Type: Spontaneous
  Country: DE (occurrence: DE)
  Receive Date: 20150420
  Receipt Date: 20150629
  Transmission Date: 20150821
  Serious: Yes (Other)
  Sender: FDA-Public Use
  Company Number: DE-ELI_LILLY_AND_COMPANY-DE201504001878

PATIENT
  Sex: Male

DRUGS (10)
  1. ZYPADHERA [Suspect]
     Active Substance: OLANZAPINE PAMOATE
     Indication: EPILEPSY
  2. ZYPADHERA [Suspect]
     Active Substance: OLANZAPINE PAMOATE
     Indication: SCHIZOPHRENIA, PARANOID TYPE
     Dosage: 300 MG, UNKNOWN
     Route: 030
     Dates: end: 201410
  3. ZYPREXA [Suspect]
     Active Substance: OLANZAPINE
     Dosage: 15 MG, BID
     Route: 065
     Dates: start: 20080616, end: 20080624
  4. ZYPREXA [Suspect]
     Active Substance: OLANZAPINE
     Dosage: 15 MG, EACH MORNING
     Route: 065
     Dates: start: 20080625, end: 20080628
  5. ZYPADHERA [Suspect]
     Active Substance: OLANZAPINE PAMOATE
     Indication: SCHIZOPHRENIA
     Dosage: 405 MG, UNKNOWN
     Route: 030
  6. ZYPREXA [Suspect]
     Active Substance: OLANZAPINE
     Indication: PRODUCT USED FOR UNKNOWN INDICATION
     Dosage: 10 MG, EACH EVENING
     Route: 065
     Dates: start: 20080614, end: 20080614
  7. ZYPREXA [Suspect]
     Active Substance: OLANZAPINE
     Dosage: 10 MG, EACH MORNING
     Route: 065
     Dates: start: 20080615, end: 20080615
  8. ZYPREXA [Suspect]
     Active Substance: OLANZAPINE
     Dosage: 15 MG, EACH EVENING
     Route: 065
     Dates: start: 20080615, end: 20080615
  9. ZYPADHERA [Suspect]
     Active Substance: OLANZAPINE PAMOATE
     Indication: POST-TRAUMATIC STRESS DISORDER
  10. ZYPADHERA [Suspect]
     Active Substance: OLANZAPINE PAMOATE
     Indication: SCHIZOPHRENIA

REACTIONS (22)
  - Constipation [Unknown]
  - Tremor [Recovered/Resolved]
  - Hypotonia [Recovered/Resolved]
  - Blunted affect [Recovered/Resolved]
  - Prescribed overdose [Recovered/Resolved]
  - Increased appetite [Unknown]
  - Megacolon [Recovered/Resolved]
  - Dysgraphia [Recovered/Resolved]
  - Drug effect decreased [Recovered/Resolved]
  - Vestibular disorder [Recovered/Resolved]
  - Haematochezia [Recovered/Resolved]
  - Gynaecomastia [Recovered/Resolved]
  - Decreased activity [Recovered/Resolved]
  - Hyperhidrosis [Recovered/Resolved]
  - Hypersomnia [Recovered/Resolved]
  - Skin odour abnormal [Recovered/Resolved]
  - Taciturnity [Recovered/Resolved]
  - Loss of libido [Recovered/Resolved]
  - Defaecation urgency [Recovered/Resolved]
  - Antisocial behaviour [Not Recovered/Not Resolved]
  - Weight increased [Not Recovered/Not Resolved]
  - Tinnitus [Recovered/Resolved]
